FAERS Safety Report 5012748-9 (Version None)
Quarter: 2006Q2

REPORT INFORMATION
  Report Type: 
  Country: None (occurrence: None)
  Receive Date: 20060530
  Receipt Date: 20060117
  Transmission Date: 20061013
  Serious: No
  Sender: FDA-Public Use
  Company Number: US-BRISTOL-MYERS SQUIBB COMPANY-13249867

PATIENT
  Age: 53 Year
  Sex: Female

DRUGS (11)
  1. ERBITUX [Suspect]
     Indication: COLORECTAL CANCER METASTATIC
     Dosage: LOADING DOSE: 400MG/M2 FOLLOWED BY 250MG/M2 FOR SUBSEQUENT DOSES
     Route: 042
     Dates: start: 20050725, end: 20050725
  2. ERBITUX [Suspect]
     Indication: COLORECTAL CANCER RECURRENT
     Dosage: LOADING DOSE: 400MG/M2 FOLLOWED BY 250MG/M2 FOR SUBSEQUENT DOSES
     Route: 042
     Dates: start: 20050725, end: 20050725
  3. CAMPTOSAR [Concomitant]
     Dates: start: 20050401, end: 20060405
  4. BENADRYL [Concomitant]
     Indication: PREMEDICATION
     Route: 042
  5. ATROPINE [Concomitant]
     Route: 040
  6. DECADRON SRC [Concomitant]
     Route: 042
  7. ANZEMET [Concomitant]
     Route: 048
  8. CLONAZEPAM [Concomitant]
  9. VITAMIN E [Concomitant]
  10. FISH OIL [Concomitant]
  11. SOY [Concomitant]

REACTIONS (2)
  - NEPHROLITHIASIS [None]
  - RASH [None]
